FAERS Safety Report 24405185 (Version 1)
Quarter: 2024Q4

REPORT INFORMATION
  Report Type: Spontaneous
  Country: CN (occurrence: CN)
  Receive Date: 20241007
  Receipt Date: 20241007
  Transmission Date: 20250115
  Serious: No
  Sender: ROCHE
  Company Number: CN-ROCHE-3561791

PATIENT
  Age: 40 Year
  Sex: Female

DRUGS (9)
  1. GAZYVA [Suspect]
     Active Substance: OBINUTUZUMAB
     Indication: Diffuse large B-cell lymphoma
     Route: 042
  2. MABTHERA [Concomitant]
     Active Substance: RITUXIMAB
     Indication: Diffuse large B-cell lymphoma
     Dosage: R-HYPERCVAD
     Route: 065
  3. COLUMVI [Concomitant]
     Active Substance: GLOFITAMAB-GXBM
     Indication: Diffuse large B-cell lymphoma
     Dosage: R-HYPERCVAD
     Route: 065
  4. CYCLOPHOSPHAMIDE [Concomitant]
     Active Substance: CYCLOPHOSPHAMIDE
     Indication: Diffuse large B-cell lymphoma
  5. PIRARUBICIN [Concomitant]
     Active Substance: PIRARUBICIN
     Indication: Diffuse large B-cell lymphoma
  6. VINDESINE [Concomitant]
     Active Substance: VINDESINE
  7. DEXAMETHASONE [Concomitant]
     Active Substance: DEXAMETHASONE
  8. LISOCABTAGENE MARALEUCEL [Concomitant]
     Active Substance: LISOCABTAGENE MARALEUCEL
     Indication: Diffuse large B-cell lymphoma
  9. ACALABRUTINIB [Concomitant]
     Active Substance: ACALABRUTINIB
     Indication: Diffuse large B-cell lymphoma

REACTIONS (2)
  - Off label use [Unknown]
  - No adverse event [Unknown]
